FAERS Safety Report 4601392-0 (Version None)
Quarter: 2005Q1

REPORT INFORMATION
  Report Type: 
  Country: None (occurrence: None)
  Receive Date: 20050202
  Receipt Date: 20040430
  Transmission Date: 20050727
  Serious: Yes (Death)
  Sender: FDA-Public Use
  Company Number: 8006185

PATIENT
  Age: 47 Year
  Sex: Male
  Weight: 60.5 kg

DRUGS (7)
  1. KEPPRA [Suspect]
     Indication: CONVULSION
     Dosage: 500 MG 2/D PO
     Route: 048
     Dates: start: 20030905, end: 20040410
  2. KEPPRA [Suspect]
     Indication: NEUROPATHIC PAIN
     Dosage: 500 MG 2/D PO
     Route: 048
     Dates: start: 20030905, end: 20040410
  3. TOPAMAX [Suspect]
     Indication: MIGRAINE
     Dosage: 25 MG 1/D PO
     Route: 048
     Dates: start: 20040404, end: 20040410
  4. FENTANYL [Concomitant]
  5. PHENERGAN [Concomitant]
  6. DIFLUNISAL [Concomitant]
  7. MAXALT [Concomitant]

REACTIONS (1)
  - COMPLETED SUICIDE [None]
